FAERS Safety Report 10769600 (Version 1)
Quarter: 2015Q1

REPORT INFORMATION
  Report Type: Spontaneous
  Country: DE (occurrence: None)
  Receive Date: 20150204
  Receipt Date: 20150204
  Transmission Date: 20150721
  Serious: Yes (Death)
  Sender: FDA-Public Use
  Company Number: 2015DE0028

PATIENT
  Sex: Male

DRUGS (1)
  1. KINERET [Suspect]
     Active Substance: ANAKINRA
     Indication: PSORIATIC ARTHROPATHY
     Dates: start: 20141112

REACTIONS (4)
  - Sepsis [None]
  - Thrombocytopenia [None]
  - Multi-organ failure [None]
  - Agranulocytosis [None]

NARRATIVE: CASE EVENT DATE: 201501
